FAERS Safety Report 9226714 (Version 2)
Quarter: 2013Q2

REPORT INFORMATION
  Report Type: Spontaneous
  Country: US (occurrence: US)
  Receive Date: 20130412
  Receipt Date: 20130524
  Transmission Date: 20140414
  Serious: No
  Sender: FDA-Public Use
  Company Number: US-PFIZER INC-2013113656

PATIENT
  Age: 43 Year
  Sex: Female
  Weight: 98.41 kg

DRUGS (3)
  1. LYRICA [Suspect]
     Indication: FIBROMYALGIA
     Dosage: 200 MG, 2X/DAY
     Route: 048
  2. CYMBALTA [Concomitant]
     Indication: SPONDYLITIS
     Dosage: 50 MG, 2X/DAY
  3. CYMBALTA [Concomitant]
     Indication: ARTHRALGIA

REACTIONS (4)
  - Sciatic nerve neuropathy [Unknown]
  - Neuropathy peripheral [Unknown]
  - Tendonitis [Unknown]
  - Neurosis [Unknown]
